FAERS Safety Report 4318960-6 (Version None)
Quarter: 2004Q1

REPORT INFORMATION
  Report Type: 
  Country: None (occurrence: None)
  Receive Date: 20040315
  Receipt Date: 20040303
  Transmission Date: 20041129
  Serious: Yes (Hospitalization)
  Sender: FDA-Public Use
  Company Number: 205025

PATIENT
  Age: 7 Year
  Sex: Female
  Weight: 19.6 kg

DRUGS (2)
  1. NUTROPIN AQ [Suspect]
     Indication: GROWTH HORMONE DEFICIENCY
     Dosage: SEEI MAGE
     Route: 058
     Dates: start: 20031030, end: 20040204
  2. NUTROPIN AQ [Suspect]
     Indication: GROWTH HORMONE DEFICIENCY
     Dosage: SEEI MAGE
     Route: 058
     Dates: start: 20040212

REACTIONS (1)
  - THYMUS HYPERTROPHY [None]
